FAERS Safety Report 25374795 (Version 1)
Quarter: 2025Q2

REPORT INFORMATION
  Report Type: Spontaneous
  Country: IL (occurrence: IL)
  Receive Date: 20250529
  Receipt Date: 20250529
  Transmission Date: 20250716
  Serious: Yes (Other)
  Sender: GILEAD
  Company Number: IL-GILEAD-2025-0714584

PATIENT
  Age: 41 Year
  Sex: Male

DRUGS (1)
  1. YESCARTA [Suspect]
     Active Substance: AXICABTAGENE CILOLEUCEL
     Indication: Follicular lymphoma stage III
     Route: 065

REACTIONS (1)
  - Immune effector cell-associated haematotoxicity [Unknown]
